FAERS Safety Report 7021024-4 (Version None)
Quarter: 2010Q3

REPORT INFORMATION
  Report Type: 
  Country: None (occurrence: None)
  Receive Date: 20100929
  Receipt Date: 20100922
  Transmission Date: 20110219
  Serious: Yes (Other)
  Sender: FDA-Public Use
  Company Number: DE-ABBOTT-10P-062-0672406-00

PATIENT
  Sex: Female

DRUGS (6)
  1. HUMIRA [Suspect]
     Indication: RHEUMATOID ARTHRITIS
     Route: 058
     Dates: start: 20061101
  2. METHOTREXATE SODIUM [Suspect]
     Indication: RHEUMATOID ARTHRITIS
     Dosage: 10 MG PER WEEK
     Dates: start: 20070201
  3. ANALGETIC DRUG [Concomitant]
     Indication: RHEUMATOID ARTHRITIS
  4. PREDNISOLONE [Concomitant]
     Indication: RHEUMATOID ARTHRITIS
     Route: 048
  5. ESTRIOL-OVULUM FEM JENAPHARM [Concomitant]
     Indication: OESTROGEN THERAPY
     Dosage: TWICE PER WEEK FOR 6 MONTHS
     Dates: start: 20091120
  6. FUNGIZID RATIO 1% [Concomitant]
     Indication: PRODUCT USED FOR UNKNOWN INDICATION
     Route: 067
     Dates: start: 20091120

REACTIONS (2)
  - CYSTITIS [None]
  - REDUCED BLADDER CAPACITY [None]
